FAERS Safety Report 4324878-5 (Version None)
Quarter: 2004Q1

REPORT INFORMATION
  Report Type: 
  Country: None (occurrence: None)
  Receive Date: 20040323
  Receipt Date: 20040316
  Transmission Date: 20041129
  Serious: Yes (Other)
  Sender: FDA-Public Use
  Company Number: 2004009553

PATIENT
  Age: 16 Year
  Sex: Female
  Weight: 60 kg

DRUGS (3)
  1. ZITHROMAX [Suspect]
     Indication: LARYNGOPHARYNGITIS
     Dosage: 500 MG, ORAL
     Route: 048
     Dates: start: 20040204, end: 20040206
  2. PL GRAN. (CAFFEINE, SALICYLAMIDE, PARACETAMOL, PROMETHAZINE METHYLENE [Concomitant]
  3. DEQUALINIUM CHLORIDE (DEQUALINIUM CHLORIDE) [Concomitant]

REACTIONS (3)
  - CONVULSION [None]
  - OEDEMA MOUTH [None]
  - SYNCOPE [None]
